FAERS Safety Report 16614730 (Version 3)
Quarter: 2019Q3

REPORT INFORMATION
  Report Type: Spontaneous
  Country: IL (occurrence: IL)
  Receive Date: 20190723
  Receipt Date: 20190916
  Transmission Date: 20191004
  Serious: Yes (Hospitalization)
  Sender: FDA-Public Use
  Company Number: IL-ACTELION-A-CH2019-193114

PATIENT
  Age: 84 Year
  Sex: Female

DRUGS (10)
  1. GLUCOPHAGE [Concomitant]
     Active Substance: METFORMIN HYDROCHLORIDE
  2. SIMVACOR [Concomitant]
     Active Substance: SIMVASTATIN
  3. SPIRONOLACTONE. [Concomitant]
     Active Substance: SPIRONOLACTONE
  4. CALCIUM + MAGNESIUM [Concomitant]
     Active Substance: CALCIUM\MAGNESIUM
  5. FOSTER [Concomitant]
     Active Substance: BECLOMETHASONE\FORMOTEROL
  6. PRADAXA [Concomitant]
     Active Substance: DABIGATRAN ETEXILATE MESYLATE
  7. OMEPRADEX [Concomitant]
     Active Substance: OMEPRAZOLE
  8. OPSUMIT [Suspect]
     Active Substance: MACITENTAN
     Indication: PULMONARY ARTERIAL HYPERTENSION
     Dosage: 10 MG, QD
     Route: 048
     Dates: start: 20190305
  9. BONDORMIN [Concomitant]
     Active Substance: BROTIZOLAM
  10. CARDILOC [Concomitant]
     Active Substance: BISOPROLOL FUMARATE

REACTIONS (7)
  - Dyspnoea [Recovering/Resolving]
  - Haemoglobin decreased [Unknown]
  - Presyncope [Not Recovered/Not Resolved]
  - Oedema [Recovering/Resolving]
  - Pulmonary oedema [Recovered/Resolved]
  - Asthenia [Recovering/Resolving]
  - Rash pruritic [Not Recovered/Not Resolved]

NARRATIVE: CASE EVENT DATE: 201907
